FAERS Safety Report 22020492 (Version 2)
Quarter: 2023Q2

REPORT INFORMATION
  Report Type: Spontaneous
  Country: JP (occurrence: JP)
  Receive Date: 20230222
  Receipt Date: 20230523
  Transmission Date: 20230721
  Serious: Yes (Disabling)
  Sender: FDA-Public Use
  Company Number: JP-ONO-2023JP004160

PATIENT
  Sex: Female
  Weight: 37 kg

DRUGS (9)
  1. OPDIVO [Suspect]
     Active Substance: NIVOLUMAB
     Indication: Gastric cancer
     Route: 041
     Dates: start: 20220825, end: 20221229
  2. DECADRON [Concomitant]
     Active Substance: DEXAMETHASONE
     Indication: Product used for unknown indication
     Route: 048
  3. OXALIPLATIN [Concomitant]
     Active Substance: OXALIPLATIN
     Indication: Gastric cancer
     Route: 041
     Dates: start: 20210702
  4. OXALIPLATIN [Concomitant]
     Active Substance: OXALIPLATIN
     Route: 041
     Dates: start: 20220825, end: 20221229
  5. TS-1 [Concomitant]
     Active Substance: GIMERACIL\OTERACIL\TEGAFUR
     Indication: Gastric cancer
     Dosage: OD
     Route: 048
     Dates: start: 20210702
  6. TS-1 [Concomitant]
     Active Substance: GIMERACIL\OTERACIL\TEGAFUR
     Dosage: OD
     Route: 048
     Dates: start: 20220127
  7. TS-1 [Concomitant]
     Active Substance: GIMERACIL\OTERACIL\TEGAFUR
     Dosage: OD
     Route: 048
     Dates: start: 20220825, end: 20221229
  8. FEMARA [Concomitant]
     Active Substance: LETROZOLE
     Indication: Product used for unknown indication
     Route: 048
  9. MAGNESIUM OXIDE [Concomitant]
     Active Substance: MAGNESIUM OXIDE
     Indication: Product used for unknown indication
     Route: 048

REACTIONS (1)
  - Adrenocorticotropic hormone deficiency [Not Recovered/Not Resolved]

NARRATIVE: CASE EVENT DATE: 20230119
